FAERS Safety Report 7402190-5 (Version None)
Quarter: 2011Q1

REPORT INFORMATION
  Report Type: 
  Country: None (occurrence: None)
  Receive Date: 20110330
  Receipt Date: 20110321
  Transmission Date: 20110831
  Serious: Yes (Other)
  Sender: FDA-Public Use
  Company Number: 2011SP010404

PATIENT
  Age: 72 Year
  Sex: Female

DRUGS (9)
  1. REMERON [Suspect]
     Indication: ANXIETY
     Dosage: BID
     Dates: start: 20110301
  2. REMERON [Suspect]
     Indication: AGITATED DEPRESSION
     Dosage: BID
     Dates: start: 20110301
  3. REMERON [Suspect]
     Indication: ANXIETY
     Dosage: BID
     Dates: end: 20110228
  4. REMERON [Suspect]
     Indication: AGITATED DEPRESSION
     Dosage: BID
     Dates: end: 20110228
  5. PHENYTOIN [Concomitant]
  6. ANXIOLYTIC [Concomitant]
  7. EBIXA [Concomitant]
  8. URSA [Concomitant]
  9. ANTIHYPERTENSIVE [Concomitant]

REACTIONS (6)
  - DRUG INTERACTION [None]
  - MEDICATION ERROR [None]
  - INAPPROPRIATE SCHEDULE OF DRUG ADMINISTRATION [None]
  - SEROTONIN SYNDROME [None]
  - BLOOD PRESSURE INCREASED [None]
  - HEPATIC ENZYME ABNORMAL [None]
